FAERS Safety Report 17975110 (Version 3)
Quarter: 2021Q2

REPORT INFORMATION
  Report Type: Spontaneous
  Country: US (occurrence: US)
  Receive Date: 20200702
  Receipt Date: 20210405
  Transmission Date: 20210717
  Serious: Yes (Other)
  Sender: FDA-Public Use
  Company Number: US-009507513-2006USA009619

PATIENT
  Age: 11 Year
  Sex: Female
  Weight: 33 kg

DRUGS (10)
  1. CEFAZOLIN [Concomitant]
     Active Substance: CEFAZOLIN
     Indication: ANTIBIOTIC PROPHYLAXIS
     Dosage: 990 MILLIGRAM, ONCE
     Route: 042
     Dates: start: 20190311, end: 20190311
  2. GLYCOPYRROLATE. [Concomitant]
     Active Substance: GLYCOPYRROLATE
     Indication: BRADYCARDIA
     Dosage: 0.1 MILLIGRAM, QD
     Route: 042
  3. BRIDION [Suspect]
     Active Substance: SUGAMMADEX
     Dosage: 2.12 MG/KG, 70 MG
     Route: 042
     Dates: start: 20190311, end: 20190311
  4. PROPOFOL. [Concomitant]
     Active Substance: PROPOFOL
     Indication: INDUCTION OF ANAESTHESIA
     Dosage: 50 MILLIGRAM, ONCE
     Route: 042
     Dates: start: 20190311, end: 20190311
  5. ROCURONIUM BROMIDE. [Concomitant]
     Active Substance: ROCURONIUM BROMIDE
     Dosage: 0.61 MG/KG, 20 MG
     Route: 042
     Dates: start: 20190311, end: 20190311
  6. BRIDION [Suspect]
     Active Substance: SUGAMMADEX
     Indication: NEUROMUSCULAR BLOCKADE REVERSAL
     Dosage: 2.12 MG/KG, 70 MG
     Route: 042
     Dates: start: 20190311
  7. FENTANYL. [Concomitant]
     Active Substance: FENTANYL
     Indication: INDUCTION OF ANAESTHESIA
     Dosage: 25 MICROGRAM, ONCE, 0.75 MICRO?G/KG
     Route: 042
     Dates: start: 20190311, end: 20190311
  8. KETAMINE [Concomitant]
     Active Substance: KETAMINE
     Indication: INDUCTION OF ANAESTHESIA
     Dosage: 10 MILLIGRAM, TID, 0.61 MG/KG
     Route: 042
     Dates: start: 20190311, end: 20190311
  9. ROCURONIUM BROMIDE. [Concomitant]
     Active Substance: ROCURONIUM BROMIDE
     Indication: NEUROMUSCULAR BLOCKADE
     Dosage: 0.61 MG/KG, 20 MG
     Route: 042
     Dates: start: 20190311
  10. ONDANSETRON [Concomitant]
     Active Substance: ONDANSETRON
     Indication: PROPHYLAXIS
     Dosage: 4 MILLIGRAM, QD
     Route: 042

REACTIONS (4)
  - Asthenia [Recovered/Resolved]
  - Off label use [Unknown]
  - Respiratory distress [Recovering/Resolving]
  - Recurrence of neuromuscular blockade [Recovering/Resolving]

NARRATIVE: CASE EVENT DATE: 20190311
